FAERS Safety Report 4944656-3 (Version None)
Quarter: 2006Q1

REPORT INFORMATION
  Report Type: 
  Country: None (occurrence: None)
  Receive Date: 20060113
  Receipt Date: 20050524
  Transmission Date: 20060701
  Serious: Yes (Other)
  Sender: FDA-Public Use
  Company Number: HQWYE829804AUG04

PATIENT
  Age: 53 Year
  Sex: Female
  Weight: 68.1 kg

DRUGS (5)
  1. PREMPRO [Suspect]
     Dosage: 0.62MG/2.5MG, ORAL
     Route: 048
     Dates: start: 20001201
  2. ESTRADIOL [Suspect]
     Dosage: ORAL
     Route: 048
     Dates: start: 19990301
  3. NORETHINDRONE (NORETHISTERONE, ) [Suspect]
     Dosage: 5MG
     Dates: start: 19990901
  4. PREMARIN [Suspect]
     Dosage: 0.625MG, ORAL
     Route: 048
     Dates: start: 19990301
  5. PROMETRIUM [Suspect]
     Dosage: 100 MG
     Dates: start: 19990301, end: 20030101

REACTIONS (1)
  - BREAST CANCER [None]
